FAERS Safety Report 4824874-5 (Version None)
Quarter: 2005Q4

REPORT INFORMATION
  Report Type: 
  Country: None (occurrence: None)
  Receive Date: 20051109
  Receipt Date: 20051109
  Transmission Date: 20060501
  Serious: Yes (Other)
  Sender: FDA-Public Use
  Company Number: None

PATIENT
  Age: 43 Year
  Sex: Female

DRUGS (6)
  1. LISINOPRIL [Suspect]
     Indication: HYPERTENSION
     Dosage: ONE DAILY ORALLY
     Route: 048
     Dates: start: 20050915, end: 20050920
  2. LISINOPRIL [Suspect]
     Indication: HYPERTENSION
     Dosage: ONE DAILY ORALLY
     Route: 048
     Dates: start: 20051106
  3. DITROPAN [Concomitant]
  4. ESTRADIOL INJ [Concomitant]
  5. TRIAMTERENE AND HYDROCHLOROTHIAZIDE [Concomitant]
  6. ADVAIR DISKUS 100/50 [Concomitant]

REACTIONS (1)
  - HEADACHE [None]
